FAERS Safety Report 4717215-5 (Version None)
Quarter: 2005Q3

REPORT INFORMATION
  Report Type: 
  Country: None (occurrence: None)
  Receive Date: 20050719
  Receipt Date: 20050708
  Transmission Date: 20060218
  Serious: Yes (Other)
  Sender: FDA-Public Use
  Company Number: PHNU2005DE02520

PATIENT
  Age: 33 Year
  Sex: Male

DRUGS (1)
  1. IMMUNOSPORIN [Suspect]
     Dosage: 100 MG, BID
     Route: 048
     Dates: start: 20050401

REACTIONS (1)
  - LIPASE INCREASED [None]
